FAERS Safety Report 24000638 (Version 1)
Quarter: 2024Q2

REPORT INFORMATION
  Report Type: Spontaneous
  Country: US (occurrence: None)
  Receive Date: 20240621
  Receipt Date: 20240621
  Transmission Date: 20240716
  Serious: Yes (Other)
  Sender: FDA-Public Use
  Company Number: None

PATIENT
  Age: 71 Year
  Sex: Male
  Weight: 61.5 kg

DRUGS (1)
  1. IRON DEXTRAN [Suspect]
     Active Substance: IRON DEXTRAN
     Dosage: 25 MG ONCE INTRAVENOUS?
     Route: 042
     Dates: start: 20240620, end: 20240620

REACTIONS (11)
  - Infusion related reaction [None]
  - Feeling hot [None]
  - Micturition urgency [None]
  - Eye movement disorder [None]
  - Tremor [None]
  - Cardio-respiratory arrest [None]
  - Oxygen saturation decreased [None]
  - Cyanosis [None]
  - Fall [None]
  - Seizure [None]
  - Loss of consciousness [None]

NARRATIVE: CASE EVENT DATE: 20240620
